FAERS Safety Report 11858289 (Version 1)
Quarter: 2015Q4

REPORT INFORMATION
  Report Type: Report from Study
  Country: JP (occurrence: JP)
  Receive Date: 20151222
  Receipt Date: 20151222
  Transmission Date: 20160305
  Serious: Yes (Life-Threatening, Other)
  Sender: FDA-Public Use
  Company Number: JP-GLAXOSMITHKLINE-A201311759

PATIENT
  Age: 34 Year
  Sex: Female
  Weight: 58 kg

DRUGS (20)
  1. LAMOTRIGINE. [Suspect]
     Active Substance: LAMOTRIGINE
     Indication: BIPOLAR I DISORDER
     Route: 048
     Dates: start: 20130416, end: 20130429
  2. TEGRETOL [Concomitant]
     Active Substance: CARBAMAZEPINE
     Indication: MANIA
     Route: 048
     Dates: end: 20130527
  3. SEROQUEL [Concomitant]
     Active Substance: QUETIAPINE FUMARATE
     Indication: DEPRESSION
     Route: 048
     Dates: start: 20130611
  4. SEROQUEL [Concomitant]
     Active Substance: QUETIAPINE FUMARATE
     Indication: DEPRESSION
     Route: 048
     Dates: start: 20130709
  5. LAMOTRIGINE. [Suspect]
     Active Substance: LAMOTRIGINE
     Indication: BIPOLAR I DISORDER
     Route: 048
     Dates: start: 20130430, end: 20130527
  6. LIMAS [Concomitant]
     Active Substance: LITHIUM CARBONATE
     Indication: MANIA
     Route: 048
     Dates: end: 20130429
  7. SERENACE [Concomitant]
     Active Substance: HALOPERIDOL
     Route: 048
     Dates: start: 20130902
  8. SERENACE [Concomitant]
     Active Substance: HALOPERIDOL
     Route: 042
     Dates: start: 20130828, end: 20130901
  9. LIMAS [Concomitant]
     Active Substance: LITHIUM CARBONATE
     Indication: MANIA
     Route: 048
     Dates: start: 20130430, end: 20130513
  10. SEROQUEL [Concomitant]
     Active Substance: QUETIAPINE FUMARATE
     Indication: DEPRESSION
     Route: 048
     Dates: start: 20130611, end: 20130708
  11. SILECE [Concomitant]
     Active Substance: FLUNITRAZEPAM
     Route: 042
     Dates: start: 20130829, end: 20130830
  12. LAMOTRIGINE. [Suspect]
     Active Substance: LAMOTRIGINE
     Indication: BIPOLAR I DISORDER
     Route: 048
     Dates: start: 20130528, end: 20130722
  13. LIMAS [Concomitant]
     Active Substance: LITHIUM CARBONATE
     Indication: MANIA
     Route: 048
     Dates: start: 20130514, end: 20130527
  14. LAMOTRIGINE. [Suspect]
     Active Substance: LAMOTRIGINE
     Indication: BIPOLAR I DISORDER
     Route: 048
     Dates: start: 20130402, end: 20130415
  15. FREEZE-DRIED LIVE ATTENUATED RUBELLA VACCINE [Concomitant]
     Route: 058
     Dates: start: 20130512, end: 20130512
  16. HORIZON [Concomitant]
     Active Substance: DIAZEPAM
     Route: 048
     Dates: start: 20130405, end: 20130405
  17. PAXIL [Concomitant]
     Active Substance: PAROXETINE HYDROCHLORIDE
     Indication: DEPRESSION
     Route: 048
     Dates: end: 20130415
  18. SERENACE [Concomitant]
     Active Substance: HALOPERIDOL
     Indication: DEPRESSION
     Route: 048
     Dates: end: 20130429
  19. SEROQUEL [Concomitant]
     Active Substance: QUETIAPINE FUMARATE
     Indication: DEPRESSION
     Route: 048
     Dates: end: 20130610
  20. SERENACE [Concomitant]
     Active Substance: HALOPERIDOL
     Indication: DEPRESSION
     Route: 048
     Dates: start: 20130430, end: 20130514

REACTIONS (5)
  - Headache [Recovered/Resolved]
  - Intentional overdose [Recovered/Resolved]
  - Live birth [Unknown]
  - Caesarean section [Unknown]
  - Exposure during pregnancy [Unknown]

NARRATIVE: CASE EVENT DATE: 20130405
